FAERS Safety Report 13368040 (Version 1)
Quarter: 2017Q1

REPORT INFORMATION
  Report Type: Spontaneous
  Country: US (occurrence: US)
  Receive Date: 20170323
  Receipt Date: 20170323
  Transmission Date: 20170429
  Serious: Yes (Other)
  Sender: FDA-Public Use
  Company Number: None

PATIENT
  Age: 66 Year
  Sex: Female

DRUGS (1)
  1. ESCITALOPRAM 10MG AUROBINDO PHARMA [Suspect]
     Active Substance: ESCITALOPRAM OXALATE
     Indication: DEPRESSION
     Route: 048
     Dates: start: 20160915, end: 20170320

REACTIONS (6)
  - Aggression [None]
  - Epistaxis [None]
  - Drug interaction [None]
  - Agitation [None]
  - Abnormal behaviour [None]
  - Logorrhoea [None]

NARRATIVE: CASE EVENT DATE: 201703
